FAERS Safety Report 6335915-0 (Version None)
Quarter: 2009Q3

REPORT INFORMATION
  Report Type: 
  Country: None (occurrence: None)
  Receive Date: 20090828
  Receipt Date: 20090828
  Transmission Date: 20100115
  Serious: Yes (Other)
  Sender: FDA-Public Use
  Company Number: None

PATIENT
  Age: 47 Year
  Sex: Male
  Weight: 99.7913 kg

DRUGS (1)
  1. PAXIL [Suspect]
     Indication: ANXIETY DISORDER
     Dosage: 20 MG. ONCE A DAY, 10 YEARS OR MORE

REACTIONS (12)
  - ABNORMAL BEHAVIOUR [None]
  - ANXIETY [None]
  - CONDITION AGGRAVATED [None]
  - CRYING [None]
  - DEPRESSION [None]
  - DRUG EFFECT DECREASED [None]
  - DRUG INEFFECTIVE [None]
  - HEADACHE [None]
  - JOB DISSATISFACTION [None]
  - MENTAL DISORDER [None]
  - PRODUCT SUBSTITUTION ISSUE [None]
  - UNEVALUABLE EVENT [None]
